FAERS Safety Report 24334498 (Version 2)
Quarter: 2024Q4

REPORT INFORMATION
  Report Type: Spontaneous
  Country: US (occurrence: US)
  Receive Date: 20240918
  Receipt Date: 20241021
  Transmission Date: 20250115
  Serious: No
  Sender: ROCHE
  Company Number: US-ROCHE-3571869

PATIENT
  Age: 81 Year
  Sex: Female
  Weight: 44.45 kg

DRUGS (3)
  1. ERIVEDGE [Suspect]
     Active Substance: VISMODEGIB
     Indication: Basal cell carcinoma
     Dosage: DRUG TAKEN ON 05-MAR-2024 AND 05-AUG-2024
     Route: 048
     Dates: start: 20240305
  2. ERIVEDGE [Suspect]
     Active Substance: VISMODEGIB
     Indication: Basal cell carcinoma
  3. ODOMZO [Concomitant]
     Active Substance: SONIDEGIB

REACTIONS (2)
  - Pruritus [Recovered/Resolved with Sequelae]
  - Muscle spasms [Recovered/Resolved with Sequelae]

NARRATIVE: CASE EVENT DATE: 20240805
